FAERS Safety Report 9264909 (Version 3)
Quarter: 2013Q2

REPORT INFORMATION
  Report Type: Spontaneous
  Country: JP (occurrence: JP)
  Receive Date: 20130501
  Receipt Date: 20130612
  Transmission Date: 20140414
  Serious: Yes (Hospitalization, Other)
  Sender: FDA-Public Use
  Company Number: JP-ROCHE-1217109

PATIENT
  Age: 81 Year
  Sex: Male

DRUGS (7)
  1. LUCENTIS [Suspect]
     Indication: AGE-RELATED MACULAR DEGENERATION
     Route: 050
     Dates: start: 20090129
  2. LUCENTIS [Suspect]
     Route: 050
     Dates: start: 20090303
  3. LUCENTIS [Suspect]
     Route: 050
     Dates: start: 20090403
  4. LUCENTIS [Suspect]
     Route: 050
     Dates: start: 20100316
  5. LUCENTIS [Suspect]
     Route: 050
     Dates: start: 20130107
  6. LUCENTIS [Suspect]
     Route: 050
     Dates: start: 20130204
  7. LUCENTIS [Suspect]
     Route: 050
     Dates: start: 20130304

REACTIONS (5)
  - Endophthalmitis [Recovering/Resolving]
  - Eye haemorrhage [Recovered/Resolved]
  - Age-related macular degeneration [Not Recovered/Not Resolved]
  - Retinal haemorrhage [Unknown]
  - Haemoglobin decreased [Unknown]
